FAERS Safety Report 10745610 (Version 3)
Quarter: 2015Q1

REPORT INFORMATION
  Report Type: Spontaneous
  Country: US (occurrence: US)
  Receive Date: 20150128
  Receipt Date: 20150313
  Transmission Date: 20150721
  Serious: No
  Sender: FDA-Public Use
  Company Number: US-PFIZER INC-2015031751

PATIENT
  Age: 69 Year
  Sex: Female
  Weight: 79 kg

DRUGS (4)
  1. ANASTROZOLE. [Concomitant]
     Active Substance: ANASTROZOLE
     Dosage: 1 MG, DAILY
  2. LYRICA [Suspect]
     Active Substance: PREGABALIN
     Indication: NEUROPATHY PERIPHERAL
     Dosage: 50 MG, ONCE DAILY (AT BED TIME)
     Route: 048
     Dates: start: 20150115, end: 20150122
  3. NORCO [Concomitant]
     Active Substance: ACETAMINOPHEN\HYDROCODONE BITARTRATE
     Indication: PAIN IN EXTREMITY
     Dosage: 0.5 DF (HALF A PILL [HYDROCODONE BITARTRATE7.5]/[PARACETAMOL 3.5]), 1X/DAY (AT NIGHT BED TIME)
  4. ATIVAN [Concomitant]
     Active Substance: LORAZEPAM
     Indication: PAIN IN EXTREMITY
     Dosage: 0.5 MG (1MG HALF A PILL), 1X/DAY (AT BED TIME)

REACTIONS (4)
  - Hallucination, auditory [Unknown]
  - Dizziness [Unknown]
  - Tinnitus [Not Recovered/Not Resolved]
  - Headache [Unknown]

NARRATIVE: CASE EVENT DATE: 20150117
